FAERS Safety Report 7956333-5 (Version None)
Quarter: 2011Q4

REPORT INFORMATION
  Report Type: 
  Country: None (occurrence: None)
  Receive Date: 20111205
  Receipt Date: 20111130
  Transmission Date: 20120403
  Serious: Yes (Other)
  Sender: FDA-Public Use
  Company Number: US-PFIZER INC-2011292703

PATIENT
  Sex: Female
  Weight: 58.957 kg

DRUGS (4)
  1. PROGESTERONE [Concomitant]
     Dosage: UNK
  2. PRILOSEC [Concomitant]
     Indication: GASTROOESOPHAGEAL REFLUX DISEASE
     Dosage: UNK
  3. LISINOPRIL [Concomitant]
     Indication: HYPERTENSION
     Dosage: 10 MG, UNK
  4. PREMARIN [Suspect]
     Indication: HORMONE REPLACEMENT THERAPY
     Dosage: 0.625 MG, 1X/DAY
     Route: 048
     Dates: start: 19950101, end: 20110601

REACTIONS (5)
  - DRY SKIN [None]
  - HAIR TEXTURE ABNORMAL [None]
  - TRICHORRHEXIS [None]
  - LIVER INJURY [None]
  - BLOOD CHOLESTEROL INCREASED [None]
